FAERS Safety Report 11985507 (Version 1)
Quarter: 2016Q1

REPORT INFORMATION
  Report Type: Not Available
  Country: US (occurrence: US)
  Receive Date: 20160201
  Receipt Date: 20160201
  Transmission Date: 20160526
  Serious: Yes (Hospitalization)
  Sender: FDA-Public Use
  Company Number: US-ANIPHARMA-2016-US-000382

PATIENT
  Age: 28 Year
  Sex: Female

DRUGS (1)
  1. PROPRANOLOL HYDROCHLORIDE (NON-SPECIFIC) [Suspect]
     Active Substance: PROPRANOLOL HYDROCHLORIDE

REACTIONS (6)
  - Cerebral disorder [Unknown]
  - Bradycardia [Unknown]
  - Seizure [Unknown]
  - Hypothermia [Unknown]
  - Overdose [Unknown]
  - Hypotension [Unknown]
